FAERS Safety Report 6637622-3 (Version None)
Quarter: 2010Q1

REPORT INFORMATION
  Report Type: 
  Country: None (occurrence: None)
  Receive Date: 20100301
  Receipt Date: 20091118
  Transmission Date: 20100710
  Serious: Yes (Death)
  Sender: FDA-Public Use
  Company Number: RB-25342-2009

PATIENT
  Age: 49 Year
  Sex: Male

DRUGS (2)
  1. SUBOXONE [Suspect]
     Indication: DRUG DEPENDENCE
     Dosage: 8 MG BID SUBLINGUAL
     Route: 060
     Dates: start: 20080724, end: 20091003
  2. ALBUTEROL [Concomitant]

REACTIONS (1)
  - ACCIDENTAL OVERDOSE [None]
